FAERS Safety Report 6625799-5 (Version None)
Quarter: 2010Q1

REPORT INFORMATION
  Report Type: 
  Country: None (occurrence: None)
  Receive Date: 20100310
  Receipt Date: 20100304
  Transmission Date: 20100710
  Serious: Yes (Hospitalization)
  Sender: FDA-Public Use
  Company Number: FR-MERCK-1002FRA00092

PATIENT
  Age: 81 Year
  Sex: Female

DRUGS (11)
  1. ZOCOR [Suspect]
     Indication: HYPERCHOLESTEROLAEMIA
     Route: 048
     Dates: start: 20070401, end: 20091019
  2. CELEBREX [Suspect]
     Route: 048
     Dates: start: 20070401, end: 20091019
  3. TARDYFERON [Suspect]
     Route: 048
     Dates: start: 20091010, end: 20091019
  4. HYZAAR [Concomitant]
     Route: 048
  5. VASTAREL [Concomitant]
     Route: 048
  6. LEVOTHYROX [Concomitant]
     Indication: HYPOTHYROIDISM
     Route: 048
  7. OROCAL D3 [Concomitant]
     Route: 048
  8. FOSAVANCE [Concomitant]
     Route: 048
  9. LEXOMIL [Concomitant]
     Route: 048
  10. IXPRIM (BINEDALINE HYDROCHLORIDE) [Concomitant]
     Indication: ARTHRALGIA
     Route: 065
  11. KETUM [Concomitant]
     Indication: ARTHRALGIA
     Route: 061

REACTIONS (4)
  - ALANINE AMINOTRANSFERASE INCREASED [None]
  - ASPARTATE AMINOTRANSFERASE INCREASED [None]
  - HYPERAMYLASAEMIA [None]
  - HYPERLIPASAEMIA [None]
